FAERS Safety Report 8488118-8 (Version None)
Quarter: 2012Q3

REPORT INFORMATION
  Report Type: 
  Country: None (occurrence: None)
  Receive Date: 20120705
  Receipt Date: 20120628
  Transmission Date: 20120928
  Serious: Yes (Other)
  Sender: FDA-Public Use
  Company Number: US-BAYER-2012-065123

PATIENT
  Age: 37 Year
  Sex: Female

DRUGS (4)
  1. DIFLUCAN [Concomitant]
     Dosage: 200 MG, 1 Q DAY X 7 DAYS
  2. YAZ [Suspect]
  3. KEFLEX [Concomitant]
     Dosage: 500 MG, TID FOR 10 DAYS
  4. KETOCONAZOLE [Concomitant]
     Dosage: UNK UNK, BID
     Route: 061

REACTIONS (1)
  - DEEP VEIN THROMBOSIS [None]
